FAERS Safety Report 5139176-X (Version None)
Quarter: 2006Q4

REPORT INFORMATION
  Report Type: 
  Country: None (occurrence: None)
  Receive Date: 20061030
  Receipt Date: 20060706
  Transmission Date: 20070319
  Serious: Yes (Other)
  Sender: FDA-Public Use
  Company Number: US-GLAXOSMITHKLINE-A0611301A

PATIENT
  Age: 73 Year
  Sex: Male

DRUGS (11)
  1. ADVAIR DISKUS 100/50 [Suspect]
     Indication: ASTHMA
     Dosage: 1PUFF TWICE PER DAY
     Route: 055
     Dates: start: 20030701
  2. SINGULAIR [Concomitant]
  3. NEXIUM [Concomitant]
  4. MAGNESIUM OXIDE [Concomitant]
  5. ZESTRIL [Concomitant]
  6. LASIX [Concomitant]
  7. COUMADIN [Concomitant]
  8. POTASSIUM ACETATE [Concomitant]
  9. TOPROL-XL [Concomitant]
  10. SPIRIVA [Concomitant]
  11. TIKOSYN [Concomitant]

REACTIONS (2)
  - ASTHMA [None]
  - PHARMACEUTICAL PRODUCT COMPLAINT [None]
